FAERS Safety Report 9796222 (Version 1)
Quarter: 2014Q1

REPORT INFORMATION
  Report Type: Spontaneous
  Country: US (occurrence: US)
  Receive Date: 20140103
  Receipt Date: 20140103
  Transmission Date: 20141002
  Serious: Yes (Other)
  Sender: FDA-Public Use
  Company Number: US-JNJFOC-20131216601

PATIENT
  Sex: 0

DRUGS (1)
  1. ITRACONAZOLE [Suspect]
     Indication: PRODUCT USED FOR UNKNOWN INDICATION
     Route: 065

REACTIONS (29)
  - Vein disorder [Unknown]
  - Skin infection [Unknown]
  - Gastrointestinal disorder [Unknown]
  - Urogenital disorder [Unknown]
  - Nervous system disorder [Unknown]
  - Liver disorder [Unknown]
  - Angiopathy [Unknown]
  - Dermatitis [Unknown]
  - Hypertension [Unknown]
  - Cardiac disorder [Unknown]
  - Acute myocardial infarction [Unknown]
  - Arteriosclerosis coronary artery [Unknown]
  - Conduction disorder [Unknown]
  - Arrhythmia [Unknown]
  - Cerebrovascular disorder [Unknown]
  - Biliary tract disorder [Unknown]
  - Pancreatic disorder [Unknown]
  - Gastrointestinal haemorrhage [Unknown]
  - Syncope [Unknown]
  - Asthenia [Unknown]
  - Hypersensitivity [Unknown]
  - Lymphatic disorder [Unknown]
  - Arthritis infective [Unknown]
  - Osteomyelitis [Unknown]
  - Connective tissue disorder [Unknown]
  - Nausea [Unknown]
  - Abdominal pain [Unknown]
  - Skin disorder [Unknown]
  - Vomiting [Unknown]
